FAERS Safety Report 19208564 (Version 2)
Quarter: 2021Q2

REPORT INFORMATION
  Report Type: Report from Study
  Country: US (occurrence: US)
  Receive Date: 20210504
  Receipt Date: 20210510
  Transmission Date: 20210717
  Serious: No
  Sender: FDA-Public Use
  Company Number: US-BIOVITRUM-2021US3417

PATIENT
  Age: 56 Year
  Sex: Female

DRUGS (1)
  1. KINERET [Suspect]
     Active Substance: ANAKINRA
     Indication: STILL^S DISEASE
     Route: 058
     Dates: start: 201902

REACTIONS (4)
  - Rash [Unknown]
  - Haemoglobin increased [Unknown]
  - Serum ferritin increased [Unknown]
  - Off label use [Unknown]

NARRATIVE: CASE EVENT DATE: 201902
